FAERS Safety Report 6533373-4 (Version None)
Quarter: 2010Q1

REPORT INFORMATION
  Report Type: 
  Country: None (occurrence: None)
  Receive Date: 20100111
  Receipt Date: 20100106
  Transmission Date: 20100710
  Serious: Yes (Disabling)
  Sender: FDA-Public Use
  Company Number: B0624062A

PATIENT
  Age: 68 Year
  Sex: Female
  Weight: 80 kg

DRUGS (4)
  1. ORLISTAT [Suspect]
     Indication: OBESITY
     Dosage: 360MG PER DAY
     Route: 048
     Dates: start: 20080807, end: 20080923
  2. CETIRIZINE [Concomitant]
     Indication: MULTIPLE ALLERGIES
     Route: 048
     Dates: start: 20050701
  3. DULOXETINE [Concomitant]
     Indication: STRESS URINARY INCONTINENCE
     Route: 048
     Dates: start: 20070401, end: 20080901
  4. RAMIPRIL [Concomitant]
     Indication: HYPERTENSION
     Route: 048
     Dates: start: 20040701

REACTIONS (3)
  - BLEPHARITIS [None]
  - KERATITIS [None]
  - PHOTOPHOBIA [None]
